FAERS Safety Report 11235816 (Version 1)
Quarter: 2015Q3

REPORT INFORMATION
  Report Type: Spontaneous
  Country: CO (occurrence: CO)
  Receive Date: 20150702
  Receipt Date: 20150702
  Transmission Date: 20151125
  Serious: Yes (Other)
  Sender: FDA-Public Use
  Company Number: CO-BAYER-2015-364598

PATIENT
  Sex: Female

DRUGS (2)
  1. QLAIRA [Suspect]
     Active Substance: DIENOGEST\ESTRADIOL VALERATE
     Dosage: UNK
     Dates: start: 201501
  2. FLUCONAZOLE. [Interacting]
     Active Substance: FLUCONAZOLE
     Indication: FUNGAL INFECTION
     Dosage: 150 MG, QOD
     Dates: start: 201506

REACTIONS (5)
  - Inappropriate schedule of drug administration [None]
  - Labelled drug-drug interaction medication error [None]
  - Polymenorrhoea [None]
  - Menorrhagia [Not Recovered/Not Resolved]
  - Fungal infection [None]

NARRATIVE: CASE EVENT DATE: 201506
